FAERS Safety Report 9433056 (Version 3)
Quarter: 2014Q3

REPORT INFORMATION
  Report Type: Spontaneous
  Country: US (occurrence: US)
  Receive Date: 20130731
  Receipt Date: 20140722
  Transmission Date: 20150326
  Serious: Yes (Hospitalization, Other)
  Sender: FDA-Public Use
  Company Number: US-009507513-1307USA017158

PATIENT
  Sex: Female
  Weight: 86.17 kg

DRUGS (4)
  1. VITAMIN D [Concomitant]
     Active Substance: CHOLECALCIFEROL
     Indication: VITAMIN D DECREASED
     Dosage: 5000 IU, UNK
     Route: 048
     Dates: start: 2011
  2. ALBUTEROL. [Concomitant]
     Active Substance: ALBUTEROL
     Indication: ASTHMA
     Dosage: UNK
     Route: 055
     Dates: start: 201204
  3. NUVARING [Suspect]
     Active Substance: ETHINYL ESTRADIOL\ETONOGESTREL
     Indication: MENSTRUAL DISORDER
     Dosage: UNK
     Route: 067
     Dates: start: 201205, end: 201302
  4. VITAMINS (UNSPECIFIED) [Concomitant]
     Active Substance: VITAMINS
     Dosage: UNK
     Route: 048
     Dates: start: 2000

REACTIONS (15)
  - Acne [Unknown]
  - Nausea [Unknown]
  - Pulmonary embolism [Unknown]
  - Goitre [Unknown]
  - Pain in extremity [Recovering/Resolving]
  - Gastroenteritis [Unknown]
  - Fibrocystic breast disease [Unknown]
  - Thyroidectomy [Unknown]
  - Coagulopathy [Unknown]
  - Off label use [Unknown]
  - Headache [Unknown]
  - Deep vein thrombosis [Unknown]
  - Atelectasis [Unknown]
  - Dacryocystorhinostomy [Unknown]
  - Conjunctivitis allergic [Unknown]

NARRATIVE: CASE EVENT DATE: 201205
